FAERS Safety Report 5634748-8 (Version None)
Quarter: 2008Q1

REPORT INFORMATION
  Report Type: 
  Country: None (occurrence: None)
  Receive Date: 20080222
  Receipt Date: 20080214
  Transmission Date: 20080703
  Serious: Yes (Hospitalization)
  Sender: FDA-Public Use
  Company Number: US-PURDUE-USA_2008_0031609

PATIENT
  Age: 59 Year
  Sex: Female

DRUGS (2)
  1. COLACE CAPSULES [Suspect]
     Indication: CONSTIPATION PROPHYLAXIS
     Dosage: 50 MG, SEE TEXT
     Dates: start: 20080206, end: 20080206
  2. ZITHROMAX [Concomitant]
     Indication: ANTIBIOTIC PROPHYLAXIS

REACTIONS (10)
  - ABDOMINAL PAIN [None]
  - ABDOMINAL PAIN LOWER [None]
  - COLD SWEAT [None]
  - DIARRHOEA [None]
  - DIARRHOEA HAEMORRHAGIC [None]
  - GASTROINTESTINAL INFLAMMATION [None]
  - MUCOUS STOOLS [None]
  - NAUSEA [None]
  - PARAESTHESIA [None]
  - VOMITING [None]
